FAERS Safety Report 10781153 (Version 4)
Quarter: 2015Q4

REPORT INFORMATION
  Report Type: Spontaneous
  Country: US (occurrence: US)
  Receive Date: 20150210
  Receipt Date: 20151016
  Transmission Date: 20160304
  Serious: No
  Sender: FDA-Public Use
  Company Number: US-PFIZER INC-2015044421

PATIENT
  Age: 88 Year
  Sex: Female
  Weight: 55 kg

DRUGS (8)
  1. METOPROLOL [Concomitant]
     Active Substance: METOPROLOL
     Dosage: UNK
  2. ATORVASTATIN [Concomitant]
     Active Substance: ATORVASTATIN
     Dosage: UNK
  3. VITAMIN E [Concomitant]
     Active Substance: .ALPHA.-TOCOPHEROL
     Dosage: UNK
  4. SUTENT [Suspect]
     Active Substance: SUNITINIB MALATE
     Dosage: 25 MG, DAILY (28 DAYS ON AND 14 OFF)
     Dates: start: 20130512
  5. ENALAPRIL [Concomitant]
     Active Substance: ENALAPRIL
     Dosage: UNK
  6. SUTENT [Suspect]
     Active Substance: SUNITINIB MALATE
     Indication: METASTATIC RENAL CELL CARCINOMA
     Dosage: 25 MG, CYCLIC (DAILY, 4 WEEKS ON, 1 WEEK OFF FOR APPROXIMATELY 1 YEAR)
     Dates: start: 2013
  7. ASPIRIN. [Concomitant]
     Active Substance: ASPIRIN
     Dosage: UNK
  8. VITAMIN C [Concomitant]
     Active Substance: ASCORBIC ACID
     Dosage: UNK

REACTIONS (7)
  - Arthropathy [Unknown]
  - Decreased appetite [Recovered/Resolved]
  - Dysgeusia [Recovered/Resolved]
  - Dry skin [Recovered/Resolved]
  - Ageusia [Recovered/Resolved]
  - Diarrhoea [Not Recovered/Not Resolved]
  - Fatigue [Recovered/Resolved]
